FAERS Safety Report 8088192-7 (Version None)
Quarter: 2012Q1

REPORT INFORMATION
  Report Type: 
  Country: None (occurrence: None)
  Receive Date: 20120131
  Receipt Date: 20120124
  Transmission Date: 20120608
  Serious: No
  Sender: FDA-Public Use
  Company Number: US-BIOGENIDEC-2012BI002915

PATIENT
  Sex: Female

DRUGS (1)
  1. TYSABRI [Suspect]
     Indication: MULTIPLE SCLEROSIS
     Route: 042
     Dates: start: 20110526

REACTIONS (7)
  - GENERAL SYMPTOM [None]
  - FATIGUE [None]
  - BRONCHITIS [None]
  - PYREXIA [None]
  - HYPERTENSION [None]
  - POOR VENOUS ACCESS [None]
  - OROPHARYNGEAL PAIN [None]
